FAERS Safety Report 17577746 (Version 1)
Quarter: 2020Q1

REPORT INFORMATION
  Report Type: Report from Study
  Country: None (occurrence: US)
  Receive Date: 20200324
  Receipt Date: 20200324
  Transmission Date: 20200409
  Serious: Yes (Hospitalization, Other)
  Sender: FDA-Public Use
  Company Number: US-ABBVIE-20K-163-3315797-00

PATIENT
  Age: 72 Year
  Sex: Male
  Weight: 70.37 kg

DRUGS (1)
  1. HUMIRA [Suspect]
     Active Substance: ADALIMUMAB
     Indication: CROHN^S DISEASE
     Dosage: START DATE- SEVERAL YEARS
     Route: 058

REACTIONS (5)
  - Spinal operation [Recovering/Resolving]
  - Injection site injury [Unknown]
  - Device issue [Unknown]
  - Wrong technique in product usage process [Unknown]
  - Cyst [Unknown]

NARRATIVE: CASE EVENT DATE: 20200229
